FAERS Safety Report 6262165-9 (Version None)
Quarter: 2009Q3

REPORT INFORMATION
  Report Type: 
  Country: None (occurrence: None)
  Receive Date: 20090702
  Receipt Date: 20090522
  Transmission Date: 20100115
  Serious: No
  Sender: FDA-Public Use
  Company Number: 1000004340

PATIENT
  Age: 40 Year
  Sex: Female
  Weight: 58.97 kg

DRUGS (3)
  1. BYSTOLIC [Suspect]
     Indication: BLOOD PRESSURE INCREASED
     Dosage: 5 MG (5 MG, 1 IN 1 D), ORAL : 2.5 MG (2.5 MG,1 IN 1 D), ORAL
     Route: 048
     Dates: start: 20080103, end: 20080321
  2. BYSTOLIC [Suspect]
     Indication: BLOOD PRESSURE INCREASED
     Dosage: 5 MG (5 MG, 1 IN 1 D), ORAL : 2.5 MG (2.5 MG,1 IN 1 D), ORAL
     Route: 048
     Dates: start: 20080322, end: 20080401
  3. BENICAR [Concomitant]

REACTIONS (3)
  - ALOPECIA [None]
  - ARTHRALGIA [None]
  - JOINT SWELLING [None]
